FAERS Safety Report 10382105 (Version 1)
Quarter: 2014Q3

REPORT INFORMATION
  Report Type: Spontaneous
  Country: GB (occurrence: GB)
  Receive Date: 20140813
  Receipt Date: 20140813
  Transmission Date: 20150326
  Serious: Yes (Other)
  Sender: FDA-Public Use
  Company Number: GB-PFIZER INC-2014221508

PATIENT
  Age: 19 Year
  Sex: Male
  Weight: 79 kg

DRUGS (1)
  1. DOXYCYCLINE MONOHYDRATE [Suspect]
     Active Substance: DOXYCYCLINE
     Indication: SINUSITIS
     Dosage: 100 MG, UNK
     Route: 048
     Dates: start: 20140721, end: 20140723

REACTIONS (3)
  - Benign intracranial hypertension [Not Recovered/Not Resolved]
  - Vision blurred [Not Recovered/Not Resolved]
  - Headache [Not Recovered/Not Resolved]

NARRATIVE: CASE EVENT DATE: 20140721
